FAERS Safety Report 23670355 (Version 6)
Quarter: 2024Q4

REPORT INFORMATION
  Report Type: Report from Study
  Country: US (occurrence: US)
  Receive Date: 20240325
  Receipt Date: 20241130
  Transmission Date: 20250114
  Serious: Yes (Other)
  Sender: ABBVIE
  Company Number: US-ABBVIE-5279141

PATIENT
  Age: 76 Year
  Sex: Male
  Weight: 131.99 kg

DRUGS (11)
  1. HUMIRA [Suspect]
     Active Substance: ADALIMUMAB
     Indication: Hidradenitis
     Dosage: FORM STRENGTH: 40 MILLIGRAMS
     Route: 058
     Dates: start: 20230523, end: 20230530
  2. HUMIRA [Suspect]
     Active Substance: ADALIMUMAB
     Dosage: FORM STRENGTH: 40 MILLIGRAMS
     Route: 058
     Dates: start: 20230530, end: 20230531
  3. HUMIRA [Suspect]
     Active Substance: ADALIMUMAB
     Dosage: FORM STRENGTH: 40 MILLIGRAMS
     Route: 058
     Dates: start: 20230919
  4. HUMIRA [Suspect]
     Active Substance: ADALIMUMAB
     Dosage: FORM STRENGTH: 40 MILLIGRAMS?STOP: 2023
     Route: 058
     Dates: start: 20230412
  5. HUMIRA [Suspect]
     Active Substance: ADALIMUMAB
     Dosage: LAST ADMIN DATE: MAY 2023?FORM STRENGTH: 40 MILLIGRAMS
     Route: 058
     Dates: start: 20230513
  6. HUMIRA [Suspect]
     Active Substance: ADALIMUMAB
     Dosage: FORM STRENGTH: 40 MILLIGRAMS? DRUG END DATE 2023
     Route: 058
     Dates: start: 20230824
  7. HUMIRA [Suspect]
     Active Substance: ADALIMUMAB
     Dosage: STOP DATE: 2023
     Route: 058
     Dates: start: 20230314
  8. ELIQUIS [Concomitant]
     Active Substance: APIXABAN
     Indication: Product used for unknown indication
     Dates: start: 2014
  9. METOPROLOL [Concomitant]
     Active Substance: METOPROLOL
     Indication: Product used for unknown indication
     Dates: start: 2014
  10. ATORVASTATIN [Concomitant]
     Active Substance: ATORVASTATIN
     Indication: Product used for unknown indication
     Dosage: FREQUENCY: 1 PER DAY
     Dates: start: 2017
  11. WARFARIN [Suspect]
     Active Substance: WARFARIN
     Indication: Product used for unknown indication
     Route: 065

REACTIONS (33)
  - Limb injury [Recovered/Resolved]
  - Hidradenitis [Recovered/Resolved]
  - Skin haemorrhage [Not Recovered/Not Resolved]
  - Headache [Recovered/Resolved]
  - Pruritus [Recovered/Resolved]
  - Productive cough [Recovered/Resolved]
  - Feeling abnormal [Recovered/Resolved]
  - Basal cell carcinoma [Not Recovered/Not Resolved]
  - Insomnia [Recovered/Resolved]
  - Blood blister [Recovered/Resolved]
  - Urticaria [Recovered/Resolved]
  - Headache [Unknown]
  - Respiratory disorder [Unknown]
  - Fear [Not Recovered/Not Resolved]
  - Knee arthroplasty [Recovering/Resolving]
  - Muscle spasms [Recovered/Resolved]
  - Fall [Recovered/Resolved]
  - Procedural pain [Unknown]
  - Pruritus [Recovered/Resolved]
  - Headache [Recovered/Resolved]
  - Feeling abnormal [Recovered/Resolved]
  - Blood disorder [Not Recovered/Not Resolved]
  - Headache [Recovered/Resolved]
  - Fall [Recovered/Resolved]
  - Loss of consciousness [Recovered/Resolved]
  - Hidradenitis [Unknown]
  - Contusion [Unknown]
  - Joint range of motion decreased [Not Recovered/Not Resolved]
  - Therapeutic product effect incomplete [Unknown]
  - Fatigue [Unknown]
  - Thrombosis [Unknown]
  - Rash [Unknown]
  - Blood disorder [Unknown]

NARRATIVE: CASE EVENT DATE: 20230525
